FAERS Safety Report 5780137-5 (Version None)
Quarter: 2008Q2

REPORT INFORMATION
  Report Type: 
  Country: None (occurrence: None)
  Receive Date: 20080620
  Receipt Date: 20070730
  Transmission Date: 20081010
  Serious: Yes (Hospitalization, Other)
  Sender: FDA-Public Use
  Company Number: US-BAYER-US-2007-028265

PATIENT
  Age: 26 Year
  Sex: Female

DRUGS (2)
  1. ULTRAVIST (PHARMACY BULK) [Suspect]
     Indication: COMPUTERISED TOMOGRAM
     Dosage: TOTAL DAILY DOSE: 100 ML  UNIT DOSE: 500 ML
     Route: 042
     Dates: start: 20070714, end: 20070714
  2. READI-CAT [Concomitant]
     Indication: COMPUTERISED TOMOGRAM
     Dosage: UNIT DOSE: 900 ML
     Route: 048
     Dates: start: 20070714, end: 20070714

REACTIONS (7)
  - DYSPNOEA [None]
  - FLUSHING [None]
  - LARYNGEAL OEDEMA [None]
  - NAUSEA [None]
  - SWELLING FACE [None]
  - TREMOR [None]
  - VOMITING [None]
